FAERS Safety Report 9951536 (Version 1)
Quarter: 2014Q1

REPORT INFORMATION
  Report Type: Report from Study
  Country: US (occurrence: US)
  Receive Date: 20140304
  Receipt Date: 20140304
  Transmission Date: 20141002
  Serious: No
  Sender: FDA-Public Use
  Company Number: US-ABBVIE-13P-163-1070526-00

PATIENT
  Age: 68 Year
  Sex: Female

DRUGS (29)
  1. HUMIRA [Suspect]
     Indication: CROHN^S DISEASE
     Dosage: LOADING DOSE COMPLETED
     Dates: start: 201302, end: 201302
  2. HUMIRA [Suspect]
     Dates: start: 201302, end: 201302
  3. HUMIRA [Suspect]
     Dates: start: 201303
  4. ZOFRAN [Concomitant]
     Indication: PRODUCT USED FOR UNKNOWN INDICATION
  5. ZETIA [Concomitant]
     Indication: PRODUCT USED FOR UNKNOWN INDICATION
  6. VERAPAMIL SR [Concomitant]
     Indication: PRODUCT USED FOR UNKNOWN INDICATION
  7. SINGULAIR [Concomitant]
     Indication: PRODUCT USED FOR UNKNOWN INDICATION
  8. SINEMET [Concomitant]
     Indication: PRODUCT USED FOR UNKNOWN INDICATION
  9. SANDOSTATIN [Concomitant]
     Indication: PRODUCT USED FOR UNKNOWN INDICATION
     Route: 050
  10. PHENERGAN [Concomitant]
     Indication: PRODUCT USED FOR UNKNOWN INDICATION
  11. PREVACID [Concomitant]
     Indication: PRODUCT USED FOR UNKNOWN INDICATION
  12. PENTASA [Concomitant]
     Indication: PRODUCT USED FOR UNKNOWN INDICATION
  13. NITRO [Concomitant]
     Indication: PRODUCT USED FOR UNKNOWN INDICATION
  14. UNKNOWN MEDICATION [Concomitant]
     Indication: PRODUCT USED FOR UNKNOWN INDICATION
     Route: 055
  15. MIRALAX [Concomitant]
     Indication: PRODUCT USED FOR UNKNOWN INDICATION
  16. MAGNESIUM [Concomitant]
     Indication: PRODUCT USED FOR UNKNOWN INDICATION
  17. LYRICA [Concomitant]
     Indication: PRODUCT USED FOR UNKNOWN INDICATION
  18. LORTAB [Concomitant]
     Indication: PRODUCT USED FOR UNKNOWN INDICATION
  19. LASIX [Concomitant]
     Indication: PRODUCT USED FOR UNKNOWN INDICATION
  20. KEPPRA [Concomitant]
     Indication: PRODUCT USED FOR UNKNOWN INDICATION
  21. HYOSYAMINE [Concomitant]
     Indication: PRODUCT USED FOR UNKNOWN INDICATION
  22. GAS-X [Concomitant]
     Indication: PRODUCT USED FOR UNKNOWN INDICATION
  23. DONNATAL [Concomitant]
     Indication: PRODUCT USED FOR UNKNOWN INDICATION
  24. DETROL LA [Concomitant]
     Indication: PRODUCT USED FOR UNKNOWN INDICATION
  25. CRESTOR [Concomitant]
     Indication: PRODUCT USED FOR UNKNOWN INDICATION
  26. COREG [Concomitant]
     Indication: PRODUCT USED FOR UNKNOWN INDICATION
  27. BENADRYL ALLERGY [Concomitant]
     Indication: PRODUCT USED FOR UNKNOWN INDICATION
  28. OXYGEN [Concomitant]
     Indication: PRODUCT USED FOR UNKNOWN INDICATION
  29. BYPAP MACHINE [Concomitant]
     Indication: PRODUCT USED FOR UNKNOWN INDICATION

REACTIONS (5)
  - Malaise [Recovering/Resolving]
  - Fatigue [Not Recovered/Not Resolved]
  - Asthenia [Not Recovered/Not Resolved]
  - Abdominal pain upper [Recovering/Resolving]
  - Nausea [Recovering/Resolving]
